FAERS Safety Report 16903869 (Version 1)
Quarter: 2019Q4

REPORT INFORMATION
  Report Type: Spontaneous
  Country: US (occurrence: US)
  Receive Date: 20191009
  Receipt Date: 20191009
  Transmission Date: 20200122
  Serious: Yes (Death, Hospitalization)
  Sender: FDA-Public Use
  Company Number: None

PATIENT
  Age: 71 Year
  Sex: Female
  Weight: 66.5 kg

DRUGS (15)
  1. HUMALOG 20 UNIT SQ TID [Concomitant]
  2. LETERMOVIR 480 MG PO DAILY [Concomitant]
  3. HUMALOG 6 UNIT SQ TID [Concomitant]
  4. METHYLPREDNISOLONE  4 MG PO QOD [Concomitant]
  5. DIFLUCAN 200 MG PO BID [Concomitant]
  6. LANTUS 5 UNIT SQ QHS [Concomitant]
  7. ZOFRAN 4 MG PO Q12H PRN [Concomitant]
  8. VISTARIL 25 MG PO QID PRN [Concomitant]
  9. NORVASC 5 MG PO DAILY [Concomitant]
  10. COLACE 100 MG PO BID PRN [Concomitant]
  11. AZACITIDINE. [Suspect]
     Active Substance: AZACITIDINE
     Indication: MYELODYSPLASTIC SYNDROME
     Route: 042
     Dates: start: 20190923, end: 20190927
  12. FOLIC ACID 1 MG PO BID [Concomitant]
  13. VALPROIC ACID. [Suspect]
     Active Substance: VALPROIC ACID
     Indication: MYELODYSPLASTIC SYNDROME
     Route: 048
     Dates: start: 20190923, end: 20191007
  14. MULTIPLE VITAMIN PO DAILY [Concomitant]
  15. OPHTHALMIC OINTMENT Q6H PRN [Concomitant]

REACTIONS (6)
  - Sepsis [None]
  - Hypotension [None]
  - Acute kidney injury [None]
  - Enterobacter infection [None]
  - Tachycardia [None]
  - Lactic acidosis [None]

NARRATIVE: CASE EVENT DATE: 20191007
